FAERS Safety Report 9658067 (Version 1)
Quarter: 2013Q4

REPORT INFORMATION
  Report Type: Report from Study
  Country: VE (occurrence: VE)
  Receive Date: 20131030
  Receipt Date: 20131030
  Transmission Date: 20140711
  Serious: Yes (Other)
  Sender: FDA-Public Use
  Company Number: VE-ABBVIE-13P-178-1163085-00

PATIENT
  Age: 42 Year
  Sex: Male
  Weight: 90 kg

DRUGS (2)
  1. HUMIRA [Suspect]
     Indication: PSORIASIS
     Route: 058
     Dates: start: 20120710, end: 201307
  2. HUMIRA [Suspect]
     Route: 058
     Dates: start: 20131024

REACTIONS (1)
  - Tuberculin test positive [Recovering/Resolving]
